FAERS Safety Report 5873084-1 (Version None)
Quarter: 2008Q3

REPORT INFORMATION
  Report Type: 
  Country: None (occurrence: None)
  Receive Date: 20080829
  Receipt Date: 20080813
  Transmission Date: 20090109
  Serious: Yes (Hospitalization)
  Sender: FDA-Public Use
  Company Number: DAB-2008-00051

PATIENT
  Age: 75 Year
  Sex: Male

DRUGS (3)
  1. EPIRUBICIN HCL [Suspect]
     Indication: PANCREATIC CARCINOMA
     Dates: start: 20080714
  2. CISPLATIN [Suspect]
     Indication: PANCREATIC CARCINOMA
     Dates: start: 20080714
  3. XELODA [Suspect]
     Indication: PANCREATIC CARCINOMA
     Dates: start: 20080714

REACTIONS (2)
  - CARDIOTOXICITY [None]
  - CHEST PAIN [None]
